FAERS Safety Report 7461432-0 (Version None)
Quarter: 2011Q2

REPORT INFORMATION
  Report Type: 
  Country: None (occurrence: None)
  Receive Date: 20110506
  Receipt Date: 20110504
  Transmission Date: 20111010
  Serious: No
  Sender: FDA-Public Use
  Company Number: US-PFIZER INC-2011096104

PATIENT

DRUGS (2)
  1. EFFEXOR [Suspect]
  2. CYMBALTA [Suspect]

REACTIONS (1)
  - RASH [None]
